FAERS Safety Report 8404954-8 (Version None)
Quarter: 2012Q2

REPORT INFORMATION
  Report Type: 
  Country: None (occurrence: None)
  Receive Date: 20120601
  Receipt Date: 20120523
  Transmission Date: 20120825
  Serious: Yes (Other)
  Sender: FDA-Public Use
  Company Number: US-BAYER-2012-052126

PATIENT
  Age: 23 Year
  Sex: Female

DRUGS (1)
  1. FINACEA [Suspect]
     Indication: ROSACEA
     Dosage: UNK
     Route: 062
     Dates: start: 20120519, end: 20120501

REACTIONS (5)
  - HYPERSENSITIVITY [None]
  - PAIN OF SKIN [None]
  - FACIAL PAIN [None]
  - SKIN EXFOLIATION [None]
  - BLISTER [None]
